FAERS Safety Report 15010514 (Version 1)
Quarter: 2018Q2

REPORT INFORMATION
  Report Type: Spontaneous
  Country: US (occurrence: US)
  Receive Date: 20180528
  Receipt Date: 20180528
  Transmission Date: 20180711
  Serious: Yes (Life-Threatening, Hospitalization, Disabling, Other)
  Sender: FDA-Public Use
  Company Number: None

PATIENT
  Age: 49 Year
  Sex: Female
  Weight: 81 kg

DRUGS (7)
  1. ASPIRIN. [Concomitant]
     Active Substance: ASPIRIN
  2. NATURE^S MEASURE ENERGY [Concomitant]
  3. RISPERIDONE. [Suspect]
     Active Substance: RISPERIDONE
     Indication: PRODUCT USED FOR UNKNOWN INDICATION
     Dates: start: 20140215, end: 20160215
  4. VITAMIN C [Concomitant]
     Active Substance: ASCORBIC ACID
  5. ALEAVE [Concomitant]
  6. WOMEN^S DAILY VITAMINS [Concomitant]
  7. POTASSIUM CHLORIDE ER [Suspect]
     Active Substance: POTASSIUM CHLORIDE
     Indication: BLOOD POTASSIUM DECREASED
     Dosage: ?          QUANTITY:30 TABLET(S);OTHER FREQUENCY:1 TABLET;?
     Route: 048
     Dates: start: 20161122, end: 20171122

REACTIONS (4)
  - Fatigue [None]
  - Hallucination, auditory [None]
  - Loss of personal independence in daily activities [None]
  - Quality of life decreased [None]

NARRATIVE: CASE EVENT DATE: 20140331
